FAERS Safety Report 21320959 (Version 1)
Quarter: 2022Q3

REPORT INFORMATION
  Report Type: Spontaneous
  Country: US (occurrence: US)
  Receive Date: 20220912
  Receipt Date: 20220912
  Transmission Date: 20221026
  Serious: No
  Sender: FDA-Public Use
  Company Number: US-Y-MABS THERAPEUTICS, INC.-SPO2022-US-000826

PATIENT

DRUGS (2)
  1. DANYELZA [Suspect]
     Active Substance: NAXITAMAB-GQGK
     Indication: Neuroblastoma
     Dosage: CYCLE 1, DOSE 1
     Route: 042
     Dates: start: 20220829, end: 20220829
  2. DANYELZA [Suspect]
     Active Substance: NAXITAMAB-GQGK
     Dosage: CYCLE 1, DOSE 2
     Route: 042
     Dates: start: 20220831, end: 20220831

REACTIONS (7)
  - Dyspnoea [Unknown]
  - Lip pain [Unknown]
  - Pain [Unknown]
  - Urticaria [Unknown]
  - Periorbital swelling [Unknown]
  - Pain [Unknown]
  - Cough [Unknown]

NARRATIVE: CASE EVENT DATE: 20220829
